FAERS Safety Report 10576284 (Version 1)
Quarter: 2014Q4

REPORT INFORMATION
  Report Type: Spontaneous
  Country: US (occurrence: US)
  Receive Date: 20141111
  Receipt Date: 20141111
  Transmission Date: 20150529
  Serious: No
  Sender: FDA-Public Use
  Company Number: US-ASTRAZENECA-2014SE84191

PATIENT
  Age: 781 Month
  Sex: Female
  Weight: 65.8 kg

DRUGS (1)
  1. SYMBICORT [Suspect]
     Active Substance: BUDESONIDE\FORMOTEROL FUMARATE DIHYDRATE
     Indication: ASTHMA
     Dosage: 80 4.5MCG 2 PUFFS BID
     Route: 055
     Dates: start: 2013

REACTIONS (2)
  - Hypoaesthesia oral [Unknown]
  - Extra dose administered [Unknown]

NARRATIVE: CASE EVENT DATE: 201410
